FAERS Safety Report 16262095 (Version 1)
Quarter: 2019Q2

REPORT INFORMATION
  Report Type: Report from Study
  Country: ES (occurrence: ES)
  Receive Date: 20190501
  Receipt Date: 20190501
  Transmission Date: 20190711
  Serious: Yes (Hospitalization, Other)
  Sender: FDA-Public Use
  Company Number: ES-PFIZER INC-2019185209

PATIENT
  Age: 48 Year
  Sex: Male

DRUGS (2)
  1. VANCOMYCIN HCL [Suspect]
     Active Substance: VANCOMYCIN HYDROCHLORIDE
     Indication: VASCULAR DEVICE INFECTION
     Dosage: 1 G, 2X/DAY (EVERY 12 HOURS)
     Route: 042
     Dates: start: 20180327, end: 20180410
  2. GENTAMICIN. [Suspect]
     Active Substance: GENTAMICIN
     Indication: VASCULAR DEVICE INFECTION
     Dosage: UNK
     Route: 042
     Dates: start: 20180327, end: 20180410

REACTIONS (2)
  - Renal tubular necrosis [Recovered/Resolved]
  - Hypokalaemia [Recovered/Resolved]

NARRATIVE: CASE EVENT DATE: 20180411
